FAERS Safety Report 5954745-2 (Version None)
Quarter: 2008Q4

REPORT INFORMATION
  Report Type: 
  Country: None (occurrence: None)
  Receive Date: 20081112
  Receipt Date: 20081031
  Transmission Date: 20090506
  Serious: Yes (Death)
  Sender: FDA-Public Use
  Company Number: GXKR2008JP10453

PATIENT
  Age: 70 Year

DRUGS (5)
  1. RIFAMPICIN [Suspect]
     Indication: TUBERCULOSIS
     Dosage: 450 MG/DAY, ORAL
     Route: 048
     Dates: start: 20081002, end: 20081026
  2. ISONIAZID [Suspect]
     Indication: TUBERCULOSIS
     Dosage: 300 MG/DAY, ORAL
     Route: 048
     Dates: start: 20081002, end: 20081026
  3. ETHAMBUTOL HCL [Suspect]
     Indication: TUBERCULOSIS
     Dosage: 750 MG/DAY, ORAL
     Route: 048
     Dates: start: 20081002, end: 20081026
  4. PYRAZINAMIDE [Suspect]
     Indication: TUBERCULOSIS
     Dosage: 1.5 G/DAY, ORAL
     Route: 048
     Dates: start: 20081002, end: 20081026
  5. ENALAPRIL MALEATE [Suspect]
     Dosage: ORAL
     Route: 048
     Dates: start: 20081002, end: 20081026

REACTIONS (2)
  - GASTROENTERITIS BACTERIAL [None]
  - RENAL FAILURE ACUTE [None]
